FAERS Safety Report 21470266 (Version 12)
Quarter: 2024Q1

REPORT INFORMATION
  Report Type: Spontaneous
  Country: CA (occurrence: CA)
  Receive Date: 20221018
  Receipt Date: 20240111
  Transmission Date: 20240410
  Serious: Yes (Other)
  Sender: FDA-Public Use
  Company Number: CA-CELLTRION INC.-2022CA016840

PATIENT

DRUGS (13)
  1. INFLECTRA [Suspect]
     Active Substance: INFLIXIMAB-DYYB
     Indication: Crohn^s disease
     Dosage: 600 MG, INDUCTION W 0, 2, 6 THEN Q 8W
     Route: 042
     Dates: start: 20220822
  2. INFLECTRA [Suspect]
     Active Substance: INFLIXIMAB-DYYB
     Dosage: 600 MG, INDUCTION W 0, 2, 6 THEN Q 8W
     Route: 042
     Dates: start: 20220907
  3. INFLECTRA [Suspect]
     Active Substance: INFLIXIMAB-DYYB
     Dosage: 600 MG, INDUCTION W 0, 2, 6 THEN Q 8W
     Route: 042
     Dates: start: 20221005
  4. INFLECTRA [Suspect]
     Active Substance: INFLIXIMAB-DYYB
     Dosage: 600 MG, INDUCTION W 0, 2, 6 THEN Q 8W
     Route: 042
     Dates: start: 20221129
  5. INFLECTRA [Suspect]
     Active Substance: INFLIXIMAB-DYYB
     Dosage: 700 MG, EVERY 8 WEEK
     Route: 042
     Dates: start: 20230130
  6. INFLECTRA [Suspect]
     Active Substance: INFLIXIMAB-DYYB
     Dosage: 700 MG, EVERY 8 WEEK
     Route: 042
     Dates: start: 20230327
  7. INFLECTRA [Suspect]
     Active Substance: INFLIXIMAB-DYYB
     Dosage: 700 MG, EVERY 8 WEEK
     Route: 042
     Dates: start: 20230523
  8. INFLECTRA [Suspect]
     Active Substance: INFLIXIMAB-DYYB
     Dosage: 700 MG, 8 WEEKS
     Route: 042
     Dates: start: 20230721
  9. INFLECTRA [Suspect]
     Active Substance: INFLIXIMAB-DYYB
     Dosage: 700 MG, 7 WEEKS AND 4 DAYS
     Route: 042
     Dates: start: 20230912
  10. INFLECTRA [Suspect]
     Active Substance: INFLIXIMAB-DYYB
     Dosage: 700 MG 8 WEEKS
     Route: 042
     Dates: start: 20231107
  11. INFLECTRA [Suspect]
     Active Substance: INFLIXIMAB-DYYB
     Dosage: 700 MG, 8 WEEKS 2 DAYS
     Route: 042
     Dates: start: 20240103
  12. CIPROFLOXACIN [Concomitant]
     Active Substance: CIPROFLOXACIN
     Dosage: 1 DF
     Route: 065
     Dates: start: 20220720
  13. METRONIDAZOLE [Concomitant]
     Active Substance: METRONIDAZOLE
     Dosage: 1 DF
     Route: 065
     Dates: start: 20220720

REACTIONS (14)
  - Uveitis [Recovered/Resolved]
  - Drainage [Recovering/Resolving]
  - Abscess drainage [Unknown]
  - Therapeutic response shortened [Unknown]
  - Condition aggravated [Recovering/Resolving]
  - Anal fissure [Recovered/Resolved]
  - Abscess [Recovered/Resolved]
  - Arthralgia [Recovered/Resolved]
  - Weight increased [Unknown]
  - Fistula [Recovered/Resolved]
  - Pain [Recovering/Resolving]
  - Cough [Not Recovered/Not Resolved]
  - Anal fistula [Recovered/Resolved]
  - Off label use [Unknown]

NARRATIVE: CASE EVENT DATE: 20220101
